FAERS Safety Report 9022289 (Version 4)
Quarter: 2015Q2

REPORT INFORMATION
  Report Type: Report from Study
  Country: DE (occurrence: DE)
  Receive Date: 20130118
  Receipt Date: 20150414
  Transmission Date: 20150821
  Serious: Yes (Death)
  Sender: FDA-Public Use
  Company Number: DE-BRISTOL-MYERS SQUIBB COMPANY-17277773

PATIENT
  Age: 53 Year
  Sex: Male
  Weight: 54 kg

DRUGS (3)
  1. CETUXIMAB [Suspect]
     Active Substance: CETUXIMAB
     Indication: HEAD AND NECK CANCER
     Dosage: MOST RECENT DOSE-23DEC12
     Route: 065
     Dates: start: 20121123
  2. FLUOROURACIL. [Suspect]
     Active Substance: FLUOROURACIL
     Indication: HEAD AND NECK CANCER
     Dosage: MOST RECENT DOSE-17DEC12
     Route: 065
     Dates: start: 20121123
  3. CISPLATIN. [Suspect]
     Active Substance: CISPLATIN
     Indication: HEAD AND NECK CANCER
     Dosage: MOST RECENT DOSE-14DEC12
     Route: 065
     Dates: start: 20121123

REACTIONS (1)
  - Sepsis [Fatal]

NARRATIVE: CASE EVENT DATE: 20130103
